FAERS Safety Report 4386623-7 (Version None)
Quarter: 2004Q2

REPORT INFORMATION
  Report Type: 
  Country: None (occurrence: None)
  Receive Date: 20040629
  Receipt Date: 20040625
  Transmission Date: 20050107
  Serious: Yes (Hospitalization)
  Sender: FDA-Public Use
  Company Number: FR-GLAXOSMITHKLINE-B0336904A

PATIENT
  Age: 42 Year
  Sex: Female

DRUGS (10)
  1. TRIZIVIR [Suspect]
     Indication: HIV INFECTION
     Dosage: 2TAB PER DAY
     Route: 048
     Dates: start: 20010626, end: 20040524
  2. LAROXYL [Concomitant]
     Dosage: 75MG PER DAY
     Route: 048
     Dates: start: 20021001, end: 20040524
  3. MOTILIUM [Concomitant]
     Dosage: 4UNIT PER DAY
     Route: 048
     Dates: start: 20021001, end: 20040524
  4. EQUANIL [Concomitant]
     Dosage: 1200MG PER DAY
     Route: 048
     Dates: start: 20021001, end: 20040524
  5. SUBUTEX [Concomitant]
     Dosage: 1MG PER DAY
     Route: 048
     Dates: start: 20021001, end: 20040524
  6. MOPRAL [Concomitant]
     Dosage: 20MG PER DAY
     Route: 048
     Dates: start: 20021001, end: 20040524
  7. TOBRAMYCINE [Concomitant]
     Route: 065
  8. TRIFLUCAN [Concomitant]
     Route: 065
  9. ALDACTONE [Concomitant]
     Route: 065
  10. GYNOPEVARYL [Concomitant]
     Route: 065

REACTIONS (5)
  - ASCITES [None]
  - BLOOD LACTIC ACID INCREASED [None]
  - CHOLELITHIASIS [None]
  - CYTOLYTIC HEPATITIS [None]
  - SPLENOMEGALY [None]
